FAERS Safety Report 7465287-X (Version None)
Quarter: 2011Q2

REPORT INFORMATION
  Report Type: 
  Country: None (occurrence: None)
  Receive Date: 20110509
  Receipt Date: 20110504
  Transmission Date: 20111010
  Serious: Yes (Life-Threatening)
  Sender: FDA-Public Use
  Company Number: PHHY2011NZ34133

PATIENT
  Sex: Female
  Weight: 64 kg

DRUGS (2)
  1. CLOZARIL [Suspect]
     Indication: SCHIZOPHRENIA
     Dosage: 325 MG, QD
     Dates: start: 20010309, end: 20110420
  2. CLOZARIL [Suspect]
     Indication: PSYCHOTIC DISORDER

REACTIONS (2)
  - TROPONIN T INCREASED [None]
  - CHEST DISCOMFORT [None]
